FAERS Safety Report 16632117 (Version 2)
Quarter: 2019Q4

REPORT INFORMATION
  Report Type: Spontaneous
  Country: US (occurrence: US)
  Receive Date: 20190725
  Receipt Date: 20191030
  Transmission Date: 20200122
  Serious: No
  Sender: FDA-Public Use
  Company Number: US-009507513-1907USA014340

PATIENT
  Age: 67 Year

DRUGS (1)
  1. ZERBAXA [Suspect]
     Active Substance: CEFTOLOZANE SULFATE\TAZOBACTAM SODIUM
     Indication: OSTEOMYELITIS CHRONIC
     Dosage: 1.5 GRAM EVERY 8H
     Route: 042

REACTIONS (1)
  - Off label use [Unknown]
